FAERS Safety Report 19526234 (Version 1)
Quarter: 2021Q3

REPORT INFORMATION
  Report Type: Spontaneous
  Country: US (occurrence: US)
  Receive Date: 20210713
  Receipt Date: 20210713
  Transmission Date: 20211014
  Serious: No
  Sender: FDA-Public Use
  Company Number: None

PATIENT
  Age: 20 Year
  Sex: Female
  Weight: 58.5 kg

DRUGS (3)
  1. XULANE [Concomitant]
     Active Substance: ETHINYL ESTRADIOL\NORELGESTROMIN
  2. IRON SUPPLEMENT [Concomitant]
     Active Substance: IRON
  3. ZAFEMY [Suspect]
     Active Substance: ETHINYL ESTRADIOL\NORELGESTROMIN
     Indication: CONTRACEPTION
     Dosage: ?          OTHER STRENGTH:MCG;QUANTITY:1 PATCH(ES);OTHER FREQUENCY:1 A WEEK;?
     Route: 061
     Dates: start: 20210529, end: 20210607

REACTIONS (6)
  - Insurance issue [None]
  - Rash vesicular [None]
  - Skin exfoliation [None]
  - Photosensitivity reaction [None]
  - Product substitution issue [None]
  - Fungal infection [None]

NARRATIVE: CASE EVENT DATE: 20210608
